FAERS Safety Report 4897374-4 (Version None)
Quarter: 2006Q1

REPORT INFORMATION
  Report Type: 
  Country: None (occurrence: None)
  Receive Date: 20060130
  Receipt Date: 20060130
  Transmission Date: 20060701
  Serious: Yes (Other)
  Sender: FDA-Public Use
  Company Number: None

PATIENT
  Age: 69 Year
  Sex: Male
  Weight: 54.4316 kg

DRUGS (1)
  1. LEVOFLOXACIN [Suspect]
     Indication: LOCALISED INFECTION
     Dosage: 500 MG TAB THRU PEG TUBE
     Dates: start: 20050620, end: 20050621

REACTIONS (1)
  - URTICARIA [None]
